FAERS Safety Report 12691165 (Version 1)
Quarter: 2016Q3

REPORT INFORMATION
  Report Type: Report from Study
  Country: FR (occurrence: FR)
  Receive Date: 20160826
  Receipt Date: 20160826
  Transmission Date: 20161109
  Serious: Yes (Other)
  Sender: FDA-Public Use
  Company Number: FR-JNJFOC-20160815268

PATIENT

DRUGS (10)
  1. DEXAMETHASONE. [Suspect]
     Active Substance: DEXAMETHASONE
     Indication: MANTLE CELL LYMPHOMA
     Dosage: DAYS 1-4
     Route: 048
  2. RADIOTHERAPY [Suspect]
     Active Substance: RADIATION THERAPY
     Indication: MANTLE CELL LYMPHOMA
     Route: 065
  3. DOXORUBICIN [Suspect]
     Active Substance: DOXORUBICIN
     Indication: MANTLE CELL LYMPHOMA
     Route: 042
  4. CISPLATIN. [Suspect]
     Active Substance: CISPLATIN
     Indication: MANTLE CELL LYMPHOMA
     Dosage: CONTINUOS INFUSION OVER 24 HOURS EVERY 3 WEEKS
     Route: 065
  5. PREDNISONE. [Suspect]
     Active Substance: PREDNISONE
     Indication: MANTLE CELL LYMPHOMA
     Dosage: DAY 1-5 , EVERY 3 WEEKS
     Route: 065
  6. ARA-C [Suspect]
     Active Substance: CYTARABINE
     Indication: MANTLE CELL LYMPHOMA
     Route: 065
  7. RITUXIMAB [Suspect]
     Active Substance: RITUXIMAB
     Indication: MANTLE CELL LYMPHOMA
     Route: 042
  8. CYCLOPHOSPHAMIDE. [Suspect]
     Active Substance: CYCLOPHOSPHAMIDE
     Indication: MANTLE CELL LYMPHOMA
     Route: 042
  9. VINCRISTINE [Suspect]
     Active Substance: VINCRISTINE
     Indication: MANTLE CELL LYMPHOMA
     Dosage: MAXIMUN 2.0MG
     Route: 042
  10. CYTARABINE. [Suspect]
     Active Substance: CYTARABINE
     Indication: MANTLE CELL LYMPHOMA
     Dosage: 2G/M2 EVERY 12 HOUR ON DAY 2
     Route: 042

REACTIONS (31)
  - Arthralgia [Unknown]
  - Blood bilirubin abnormal [Unknown]
  - Infection [Unknown]
  - Platelet disorder [Unknown]
  - Constipation [Unknown]
  - Haematuria [Unknown]
  - Haemorrhage [Unknown]
  - Myalgia [Unknown]
  - Blood creatinine abnormal [Unknown]
  - Cardiotoxicity [Unknown]
  - Granulocytes abnormal [Unknown]
  - Transaminases abnormal [Unknown]
  - Hypersensitivity [Unknown]
  - Fatigue [Unknown]
  - Nausea [Unknown]
  - Treatment failure [Unknown]
  - Arrhythmia [Unknown]
  - Haemoglobin abnormal [Unknown]
  - Lymphocyte count abnormal [Unknown]
  - Mucosal inflammation [Unknown]
  - Pulmonary toxicity [Unknown]
  - Mantle cell lymphoma recurrent [Unknown]
  - White blood cell disorder [Unknown]
  - Alopecia [Unknown]
  - Bone marrow failure [Unknown]
  - Febrile neutropenia [Unknown]
  - Neuropathy peripheral [Unknown]
  - Depression [Unknown]
  - Weight decreased [Unknown]
  - Diarrhoea [Unknown]
  - Vomiting [Unknown]
